FAERS Safety Report 10171279 (Version 2)
Quarter: 2014Q2

REPORT INFORMATION
  Report Type: Spontaneous
  Country: US (occurrence: US)
  Receive Date: 20140514
  Receipt Date: 20140626
  Transmission Date: 20141212
  Serious: No
  Sender: FDA-Public Use
  Company Number: US-PFIZER INC-2014130841

PATIENT
  Age: 52 Year
  Sex: Female

DRUGS (5)
  1. SUTENT [Suspect]
     Indication: RENAL CANCER
     Dosage: 37.5 MG, CYCLIC (37.5MG QDAY FOR 28D Q42DAY)
     Route: 048
     Dates: start: 20090506
  2. MAGIC MOUTHWASH [Concomitant]
     Indication: ORAL PAIN
     Dosage: UNK
  3. GLYBURIDE [Concomitant]
     Indication: TYPE 2 DIABETES MELLITUS
     Dosage: UNK
  4. METFORMIN [Concomitant]
     Indication: TYPE 2 DIABETES MELLITUS
     Dosage: UNK
  5. SANTYL [Concomitant]
     Dosage: UNK

REACTIONS (5)
  - Oral pain [Unknown]
  - Glossodynia [Unknown]
  - Nausea [Unknown]
  - Fatigue [Unknown]
  - Memory impairment [Unknown]
